FAERS Safety Report 6261389-4 (Version None)
Quarter: 2009Q3

REPORT INFORMATION
  Report Type: 
  Country: None (occurrence: None)
  Receive Date: 20090709
  Receipt Date: 20090704
  Transmission Date: 20100115
  Serious: Yes (Hospitalization)
  Sender: FDA-Public Use
  Company Number: BR-BAYER-200822375LA

PATIENT
  Age: 27 Year
  Sex: Female
  Weight: 63 kg

DRUGS (1)
  1. BETAFERON [Suspect]
     Indication: MULTIPLE SCLEROSIS
     Dosage: BETAJECT
     Route: 058
     Dates: start: 20030101

REACTIONS (22)
  - ABDOMINAL DISTENSION [None]
  - ABDOMINAL PAIN [None]
  - ABDOMINAL RIGIDITY [None]
  - ABDOMINAL TENDERNESS [None]
  - ABDOMINAL WALL CYST [None]
  - BED REST [None]
  - FEELING COLD [None]
  - HEAD DISCOMFORT [None]
  - IMMOBILE [None]
  - INFLUENZA LIKE ILLNESS [None]
  - INJECTION SITE ERYTHEMA [None]
  - INJECTION SITE INFECTION [None]
  - INJECTION SITE NECROSIS [None]
  - INJECTION SITE PAIN [None]
  - LOCAL SWELLING [None]
  - MOBILITY DECREASED [None]
  - MYOSITIS [None]
  - NERVOUSNESS [None]
  - RASH [None]
  - SEPSIS [None]
  - SOFT TISSUE NECROSIS [None]
  - VAGINAL DISCHARGE [None]
